FAERS Safety Report 24714184 (Version 1)
Quarter: 2024Q4

REPORT INFORMATION
  Report Type: Other
  Country: US (occurrence: US)
  Receive Date: 20241209
  Receipt Date: 20241209
  Transmission Date: 20250114
  Serious: No
  Sender: SHEFFIELD
  Company Number: US-Sheffield Pharmaceuticals, LLC-2166781

PATIENT
  Sex: Female

DRUGS (1)
  1. DR. SHEFFIELD PSORIASIS MEDICATED MOISTURIZER [Suspect]
     Active Substance: SALICYLIC ACID
     Dates: start: 20241009, end: 20241009

REACTIONS (1)
  - Application site pruritus [Recovered/Resolved]

NARRATIVE: CASE EVENT DATE: 20241009
